FAERS Safety Report 17946685 (Version 2)
Quarter: 2021Q3

REPORT INFORMATION
  Report Type: Spontaneous
  Country: US (occurrence: US)
  Receive Date: 20200626
  Receipt Date: 20210730
  Transmission Date: 20211014
  Serious: Yes (Death, Other)
  Sender: FDA-Public Use
  Company Number: US-SA-2020SA163976

PATIENT
  Age: 85 Year

DRUGS (2)
  1. ZANTAC [Suspect]
     Active Substance: RANITIDINE HYDROCHLORIDE
     Indication: GASTROOESOPHAGEAL REFLUX DISEASE
  2. ZANTAC [Suspect]
     Active Substance: RANITIDINE HYDROCHLORIDE
     Indication: EROSIVE OESOPHAGITIS
     Dosage: 150 MG
     Dates: start: 199302, end: 201201

REACTIONS (4)
  - Renal cancer stage IV [Unknown]
  - Colorectal cancer [Fatal]
  - Thyroid cancer [Fatal]
  - Metastatic neoplasm [Unknown]

NARRATIVE: CASE EVENT DATE: 20020101
